FAERS Safety Report 8470665-6 (Version None)
Quarter: 2012Q2

REPORT INFORMATION
  Report Type: 
  Country: None (occurrence: None)
  Receive Date: 20120323
  Receipt Date: 20111014
  Transmission Date: 20120825
  Serious: Yes (Other)
  Sender: FDA-Public Use
  Company Number: 163-21880-11081761

PATIENT
  Age: 73 Year
  Sex: Female
  Weight: 45.3597 kg

DRUGS (9)
  1. ADVAIR HFA (SERETIDE MITE) [Concomitant]
  2. METHYLDOPA [Concomitant]
  3. ASPIRIN [Concomitant]
  4. AGGRENOX [Concomitant]
  5. REVLIMID [Suspect]
     Indication: MULTIPLE MYELOMA
     Dosage: 25 MG, DAILY FOR 21 DAYS, PO
     Route: 048
     Dates: start: 20101013
  6. DECADRON [Concomitant]
  7. TRIAMTERNE-HCTZ (DYAZIDE) [Concomitant]
  8. DARBEPOETIN ALFA-ALBUMIN (DARBEPOETIN ALFA) [Concomitant]
  9. OXYGEN (OXYGEN) [Concomitant]

REACTIONS (2)
  - MUSCLE SPASMS [None]
  - CEREBROVASCULAR ACCIDENT [None]
